FAERS Safety Report 17371983 (Version 1)
Quarter: 2020Q1

REPORT INFORMATION
  Report Type: Spontaneous
  Country: GB (occurrence: GB)
  Receive Date: 20200205
  Receipt Date: 20200205
  Transmission Date: 20200409
  Serious: Yes (Hospitalization, Other)
  Sender: FDA-Public Use
  Company Number: GB-MYLANLABS-2020M1013042

PATIENT
  Age: 22 Year
  Sex: Female

DRUGS (1)
  1. NAPROXEN. [Suspect]
     Active Substance: NAPROXEN
     Indication: PRODUCT USED FOR UNKNOWN INDICATION
     Dosage: UNKNOWN DOSE.
     Route: 048
     Dates: start: 20191115, end: 20191115

REACTIONS (7)
  - Melaena [Unknown]
  - Renal tubular injury [Unknown]
  - Acute kidney injury [Recovering/Resolving]
  - Malaise [Unknown]
  - Nausea [Unknown]
  - Overdose [Unknown]
  - Back pain [Unknown]

NARRATIVE: CASE EVENT DATE: 20191118
